FAERS Safety Report 13115920 (Version 2)
Quarter: 2017Q1

REPORT INFORMATION
  Report Type: Report from Study
  Country: None (occurrence: US)
  Receive Date: 20170115
  Receipt Date: 20170310
  Transmission Date: 20170428
  Serious: Yes (Other)
  Sender: FDA-Public Use
  Company Number: US-ABBVIE-16K-163-1710839-00

PATIENT
  Sex: Male

DRUGS (2)
  1. HUMIRA [Suspect]
     Active Substance: ADALIMUMAB
     Indication: CROHN^S DISEASE
     Route: 058
     Dates: start: 201507, end: 201606
  2. HUMIRA [Suspect]
     Active Substance: ADALIMUMAB
     Route: 058

REACTIONS (9)
  - Eye pruritus [Unknown]
  - Dizziness [Not Recovered/Not Resolved]
  - Staphylococcal infection [Unknown]
  - Haemorrhoids [Not Recovered/Not Resolved]
  - Haematochezia [Unknown]
  - Nasal ulcer [Unknown]
  - Suicidal ideation [Unknown]
  - Dysstasia [Not Recovered/Not Resolved]
  - Gastric ulcer [Unknown]
